FAERS Safety Report 9103323 (Version 1)
Quarter: 2013Q1

REPORT INFORMATION
  Report Type: Spontaneous
  Country: US (occurrence: US)
  Receive Date: 20130219
  Receipt Date: 20130219
  Transmission Date: 20140127
  Serious: Yes (Hospitalization)
  Sender: FDA-Public Use
  Company Number: US-GLAXOSMITHKLINE-A0718136A

PATIENT
  Age: 50 Year
  Sex: Female
  Weight: 143.2 kg

DRUGS (5)
  1. AVANDIA [Suspect]
     Indication: TYPE 2 DIABETES MELLITUS
     Dosage: 4MG TWICE PER DAY
     Dates: start: 200208, end: 200808
  2. CITALOPRAM [Concomitant]
     Indication: DEPRESSION
  3. PLENDIL [Concomitant]
  4. METFORMIN [Concomitant]
  5. GLYBURIDE [Concomitant]

REACTIONS (2)
  - Chest pain [Not Recovered/Not Resolved]
  - Heart injury [Unknown]
